FAERS Safety Report 8450743-8 (Version None)
Quarter: 2012Q2

REPORT INFORMATION
  Report Type: 
  Country: None (occurrence: None)
  Receive Date: 20120620
  Receipt Date: 20120611
  Transmission Date: 20120825
  Serious: Yes (Other)
  Sender: FDA-Public Use
  Company Number: AU-JNJFOC-20120605622

PATIENT
  Sex: Female

DRUGS (2)
  1. REMICADE [Suspect]
     Indication: ANKYLOSING SPONDYLITIS
     Route: 042
     Dates: start: 20120601
  2. REMICADE [Suspect]
     Route: 042

REACTIONS (2)
  - SYSTEMIC LUPUS ERYTHEMATOSUS [None]
  - ALOPECIA [None]
